FAERS Safety Report 16614048 (Version 1)
Quarter: 2019Q3

REPORT INFORMATION
  Report Type: Spontaneous
  Country: JP (occurrence: JP)
  Receive Date: 20190723
  Receipt Date: 20190723
  Transmission Date: 20191004
  Serious: Yes (Death, Other)
  Sender: FDA-Public Use
  Company Number: JP-AMGEN-JPNSP2019116663

PATIENT
  Age: 36 Year
  Sex: Female

DRUGS (1)
  1. RANMARK [Suspect]
     Active Substance: DENOSUMAB
     Indication: METASTASES TO BONE
     Dosage: UNK
     Route: 065

REACTIONS (4)
  - Oesophageal varices haemorrhage [Fatal]
  - Malignant pleural effusion [Not Recovered/Not Resolved]
  - Hepatic enzyme increased [Unknown]
  - Pathological fracture [Unknown]
